FAERS Safety Report 12448419 (Version 1)
Quarter: 2016Q2

REPORT INFORMATION
  Report Type: Spontaneous
  Country: CN (occurrence: CN)
  Receive Date: 20160608
  Receipt Date: 20160608
  Transmission Date: 20160815
  Serious: Yes (Hospitalization)
  Sender: FDA-Public Use
  Company Number: CN-ASTRAZENECA-2016SE60918

PATIENT
  Sex: Male

DRUGS (1)
  1. QUETIAPINE FUMARATE. [Suspect]
     Active Substance: QUETIAPINE FUMARATE
     Indication: MENTAL DISORDER
     Route: 048
     Dates: start: 20150908, end: 20151208

REACTIONS (4)
  - Dyspnoea [Recovering/Resolving]
  - Hypophagia [Recovering/Resolving]
  - Muscle rigidity [Recovering/Resolving]
  - Physical examination abnormal [Recovering/Resolving]
